FAERS Safety Report 17747900 (Version 5)
Quarter: 2021Q3

REPORT INFORMATION
  Report Type: Report from Study
  Country: BR (occurrence: BR)
  Receive Date: 20200505
  Receipt Date: 20210916
  Transmission Date: 20211014
  Serious: Yes (Hospitalization, Other)
  Sender: FDA-Public Use
  Company Number: NVSC2020BR034801

PATIENT
  Age: 44 Year
  Sex: Female

DRUGS (6)
  1. COSENTYX [Suspect]
     Active Substance: SECUKINUMAB
     Dosage: UNK UNK, QMO
     Route: 065
     Dates: start: 201910
  2. COSENTYX [Suspect]
     Active Substance: SECUKINUMAB
     Dosage: UNK UNK, QMO
     Route: 065
     Dates: start: 20191026
  3. COSENTYX [Suspect]
     Active Substance: SECUKINUMAB
     Dosage: UNK UNK, UNKNOWN
     Route: 065
     Dates: start: 20201226
  4. COSENTYX [Suspect]
     Active Substance: SECUKINUMAB
     Dosage: UNK UNK, QW
     Route: 065
     Dates: end: 202103
  5. COSENTYX [Suspect]
     Active Substance: SECUKINUMAB
     Indication: PSORIASIS
     Dosage: 300 MG, QMO (2 PENS)
     Route: 058
     Dates: start: 20190930
  6. COSENTYX [Suspect]
     Active Substance: SECUKINUMAB
     Dosage: UNK UNK, UNKNOWN
     Route: 065
     Dates: start: 20210126

REACTIONS (18)
  - Helicobacter infection [Recovered/Resolved]
  - Immunodeficiency [Recovered/Resolved]
  - Urinary tract infection [Recovered/Resolved]
  - Polyuria [Recovering/Resolving]
  - Serum ferritin decreased [Recovered/Resolved]
  - Aphthous ulcer [Recovered/Resolved]
  - Discomfort [Recovering/Resolving]
  - Dysuria [Recovering/Resolving]
  - Anxiety [Recovering/Resolving]
  - Sinusitis [Recovering/Resolving]
  - Candida infection [Recovered/Resolved]
  - Productive cough [Unknown]
  - Pain [Recovering/Resolving]
  - Headache [Unknown]
  - Candida infection [Recovered/Resolved]
  - Cystitis [Recovering/Resolving]
  - Furuncle [Recovered/Resolved]
  - Malaise [Recovering/Resolving]

NARRATIVE: CASE EVENT DATE: 201910
